FAERS Safety Report 9752580 (Version 2)
Quarter: 2013Q4

REPORT INFORMATION
  Report Type: Spontaneous
  Country: LB (occurrence: LB)
  Receive Date: 20131213
  Receipt Date: 20131213
  Transmission Date: 20140711
  Serious: Yes (Other)
  Sender: FDA-Public Use
  Company Number: LB-JNJFOC-20130115947

PATIENT
  Age: 79 Year
  Sex: Female

DRUGS (18)
  1. RISPERDAL [Suspect]
     Indication: AGGRESSION
     Dosage: 1/4 TABLET
     Route: 048
     Dates: start: 20130119, end: 20130119
  2. RISPERDAL [Suspect]
     Indication: AGGRESSION
     Dosage: HALF TABLET
     Route: 048
  3. RISPERDAL [Suspect]
     Indication: AGGRESSION
     Dosage: 1/2 TABLET
     Route: 048
     Dates: start: 20130118, end: 20130118
  4. RISPERDAL [Suspect]
     Indication: AGGRESSION
     Dosage: 3/4 TABLET
     Route: 048
     Dates: start: 20130120
  5. RISPERDAL [Suspect]
     Indication: ANXIETY
     Dosage: 1/2 TABLET
     Route: 048
     Dates: start: 20130118, end: 20130118
  6. RISPERDAL [Suspect]
     Indication: ANXIETY
     Dosage: HALF TABLET
     Route: 048
  7. RISPERDAL [Suspect]
     Indication: ANXIETY
     Dosage: 3/4 TABLET
     Route: 048
     Dates: start: 20130120
  8. RISPERDAL [Suspect]
     Indication: ANXIETY
     Dosage: 1/4 TABLET
     Route: 048
     Dates: start: 20130119, end: 20130119
  9. LUSOPRESS [Concomitant]
     Route: 065
  10. NATECAL D3 [Concomitant]
     Route: 065
  11. MICARDIS [Concomitant]
     Route: 065
  12. EBIXA [Concomitant]
     Route: 065
  13. DUPHALAC [Concomitant]
     Route: 065
  14. ATORVASTATIN CALCIUM [Concomitant]
     Route: 065
  15. INDAPAMIDE [Concomitant]
     Route: 065
  16. VITAMIN D3 [Concomitant]
     Route: 065
  17. GASTRIMUT [Concomitant]
     Route: 065
  18. FLUOXETINE HYDROCHLORIDE [Concomitant]
     Route: 065

REACTIONS (7)
  - Hypotension [Recovered/Resolved]
  - Aggression [Recovered/Resolved]
  - Muscular weakness [Recovered/Resolved]
  - Agitation [Recovered/Resolved]
  - Somnolence [Recovered/Resolved]
  - Medication error [Unknown]
  - Vitamin B12 deficiency [Recovering/Resolving]
